APPROVED DRUG PRODUCT: LIDOCAINE HYDROCHLORIDE
Active Ingredient: LIDOCAINE HYDROCHLORIDE
Strength: 2%
Dosage Form/Route: SOLUTION;ORAL
Application: A219759 | Product #001 | TE Code: AT
Applicant: AUROBINDO PHARMA LTD
Approved: Jul 29, 2025 | RLD: No | RS: No | Type: RX